FAERS Safety Report 12374479 (Version 1)
Quarter: 2016Q2

REPORT INFORMATION
  Report Type: Report from Study
  Country: US (occurrence: US)
  Receive Date: 20160517
  Receipt Date: 20160517
  Transmission Date: 20160815
  Serious: Yes (Death, Hospitalization, Other)
  Sender: FDA-Public Use
  Company Number: US-ROCHE-1753842

PATIENT
  Age: 70 Year
  Sex: Female
  Weight: 61.78 kg

DRUGS (3)
  1. MORPHINE [Concomitant]
     Active Substance: MORPHINE
     Dosage: AS REQUIRED
     Route: 048
  2. MAGIC MOUTHWASH (BENADRYL) [Concomitant]
  3. CAPECITABINE. [Suspect]
     Active Substance: CAPECITABINE
     Indication: BREAST CANCER
     Route: 048
     Dates: start: 20150304

REACTIONS (7)
  - Arrhythmia [Recovered/Resolved]
  - Intestinal obstruction [Unknown]
  - Hypotension [Unknown]
  - Sedation [Recovering/Resolving]
  - Anxiety [Unknown]
  - Disease progression [Fatal]
  - Abdominal pain [Unknown]

NARRATIVE: CASE EVENT DATE: 20150330
